FAERS Safety Report 9248202 (Version 1)
Quarter: 2013Q2

REPORT INFORMATION
  Report Type: Spontaneous
  Country: US (occurrence: None)
  Receive Date: 20130419
  Receipt Date: 20130419
  Transmission Date: 20140414
  Serious: Yes (Hospitalization)
  Sender: FDA-Public Use
  Company Number: None

PATIENT
  Age: 32 Year
  Sex: Male
  Weight: 67 kg

DRUGS (1)
  1. CARFILZOMIB [Suspect]
     Indication: ACUTE MYELOID LEUKAEMIA
     Dosage: DAY 1,2,8,9, IV
     Route: 042

REACTIONS (1)
  - Colitis [None]
